FAERS Safety Report 7570548-X (Version None)
Quarter: 2011Q2

REPORT INFORMATION
  Report Type: 
  Country: None (occurrence: None)
  Receive Date: 20110624
  Receipt Date: 20110405
  Transmission Date: 20111010
  Serious: No
  Sender: FDA-Public Use
  Company Number: US-ALLERGAN-1104785US

PATIENT
  Age: 46 Year
  Sex: Female

DRUGS (2)
  1. OPTICON OTC EYE DROP [Concomitant]
     Dosage: UNK
  2. LATISSE [Suspect]
     Indication: GROWTH OF EYELASHES
     Dosage: 1 GTT, QHS
     Dates: start: 20110401, end: 20110404

REACTIONS (1)
  - HEADACHE [None]
